FAERS Safety Report 24343012 (Version 2)
Quarter: 2024Q4

REPORT INFORMATION
  Report Type: Spontaneous
  Country: US (occurrence: US)
  Receive Date: 20240920
  Receipt Date: 20241004
  Transmission Date: 20250115
  Serious: Yes (Death, Hospitalization, Other)
  Sender: BAXTER
  Company Number: US-BAXTER-2024BAX024376

PATIENT
  Age: 45 Year
  Sex: Male
  Weight: 85.1 kg

DRUGS (3)
  1. CYCLOPHOSPHAMIDE [Suspect]
     Active Substance: CYCLOPHOSPHAMIDE
     Indication: Lymphodepletion
     Dosage: 500 MG/M2/DAY
     Route: 042
     Dates: start: 20240716, end: 20240718
  2. FLUDARABINE [Suspect]
     Active Substance: FLUDARABINE PHOSPHATE
     Indication: Lymphodepletion
     Dosage: 25 MG/M2/DAY, FROM DAY 6
     Route: 042
     Dates: start: 20240715, end: 20240719
  3. ALDESLEUKIN [Suspect]
     Active Substance: ALDESLEUKIN
     Indication: Colony stimulating factor therapy
     Dosage: 6 MILLION IU
     Route: 058
     Dates: start: 20240729, end: 20240729

REACTIONS (14)
  - Death [Fatal]
  - Metastases to bone [Unknown]
  - Condition aggravated [Unknown]
  - Colon cancer metastatic [Unknown]
  - Hepatic failure [Not Recovered/Not Resolved]
  - Thrombocytopenia [Not Recovered/Not Resolved]
  - Biliary obstruction [Unknown]
  - Cytopenia [Unknown]
  - Metastases to liver [Unknown]
  - Portal hypertension [Unknown]
  - Disseminated intravascular coagulation [Unknown]
  - Hyperbilirubinaemia [Unknown]
  - Splenomegaly [Unknown]
  - Rash [Unknown]

NARRATIVE: CASE EVENT DATE: 20240722
